FAERS Safety Report 21641463 (Version 3)
Quarter: 2023Q1

REPORT INFORMATION
  Report Type: Spontaneous
  Country: JP (occurrence: JP)
  Receive Date: 20221125
  Receipt Date: 20230220
  Transmission Date: 20230418
  Serious: Yes (Hospitalization)
  Sender: FDA-Public Use
  Company Number: JP-KERYX BIOPHARMACEUTICALS INC.-JP-AKEB-22-022810

PATIENT

DRUGS (9)
  1. TETRAFERRIC TRICITRATE DECAHYDRATE [Suspect]
     Active Substance: TETRAFERRIC TRICITRATE DECAHYDRATE
     Indication: Hyperphosphataemia
     Dosage: 500 MILLIGRAM, Q8H
     Route: 048
     Dates: start: 20221028
  2. TETRAFERRIC TRICITRATE DECAHYDRATE [Suspect]
     Active Substance: TETRAFERRIC TRICITRATE DECAHYDRATE
     Dosage: 1000 MILLIGRAM, Q8H
     Route: 048
     Dates: start: 20221104
  3. FUTIBATINIB [Suspect]
     Active Substance: FUTIBATINIB
     Indication: Oesophageal carcinoma
     Dosage: 20 MILLIGRAM, QD
     Route: 048
     Dates: start: 20221021, end: 20221103
  4. FUTIBATINIB [Suspect]
     Active Substance: FUTIBATINIB
     Dosage: 16 MILLIGRAM, QD
     Route: 048
     Dates: start: 20221104, end: 20221113
  5. FUTIBATINIB [Suspect]
     Active Substance: FUTIBATINIB
     Dosage: 16 MILLIGRAM, QD
     Route: 048
     Dates: start: 20221114, end: 20221201
  6. FUTIBATINIB [Suspect]
     Active Substance: FUTIBATINIB
     Dosage: 12 MILLIGRAM, QD
     Route: 048
     Dates: start: 20221202, end: 20221222
  7. PEMBROLIZUMAB [Suspect]
     Active Substance: PEMBROLIZUMAB
     Indication: Oesophageal carcinoma
     Dosage: 200 MILLIGRAM, 3W
     Route: 042
     Dates: start: 20221021, end: 20221113
  8. PEMBROLIZUMAB [Suspect]
     Active Substance: PEMBROLIZUMAB
     Dosage: 200 MILLIGRAM, 3W
     Route: 042
     Dates: start: 20221114
  9. PEMBROLIZUMAB [Suspect]
     Active Substance: PEMBROLIZUMAB
     Dosage: 200 MILLIGRAM, 3W
     Route: 042
     Dates: end: 20221202

REACTIONS (1)
  - Pathological fracture [Not Recovered/Not Resolved]

NARRATIVE: CASE EVENT DATE: 20221104
